FAERS Safety Report 9294266 (Version 1)
Quarter: 2013Q2

REPORT INFORMATION
  Report Type: Spontaneous
  Country: US (occurrence: US)
  Receive Date: 20130516
  Receipt Date: 20130516
  Transmission Date: 20140414
  Serious: Yes (Hospitalization)
  Sender: FDA-Public Use
  Company Number: US-BAXTER-2013BAX017230

PATIENT
  Age: 72 Year
  Sex: Male

DRUGS (2)
  1. DIANEAL LOW CALCIUM [Suspect]
     Indication: PERITONEAL DIALYSIS
     Route: 033
     Dates: start: 2012
  2. DIANEAL LOW CALCIUM [Suspect]
     Route: 033
     Dates: start: 2012

REACTIONS (5)
  - Upper gastrointestinal haemorrhage [Recovering/Resolving]
  - Mallory-Weiss syndrome [Recovering/Resolving]
  - Pneumonia [Unknown]
  - Urinary tract infection [Unknown]
  - Malaise [Recovering/Resolving]
